FAERS Safety Report 10388755 (Version 1)
Quarter: 2014Q1

REPORT INFORMATION
  Report Type: Spontaneous
  Country: US (occurrence: None)
  Receive Date: 20140306
  Receipt Date: 20140306
  Transmission Date: 20141002
  Serious: Yes (Life-Threatening, Hospitalization)
  Sender: FDA-Public Use
  Company Number: 163-21880-13123911

PATIENT
  Age: 78 Year
  Sex: Female

DRUGS (1)
  1. REVLIMID (LENALIDOMIDE) (10 MILLIGRAM, CAPSULES) [Suspect]
     Indication: MYELODYSPLASTIC SYNDROME
     Route: 048
     Dates: start: 201204, end: 20130224

REACTIONS (5)
  - Subdural haematoma [None]
  - Convulsion [None]
  - Thrombosis [None]
  - Fall [None]
  - Full blood count decreased [None]
